FAERS Safety Report 9874612 (Version 2)
Quarter: 2014Q1

REPORT INFORMATION
  Report Type: Report from Study
  Country: IN (occurrence: IN)
  Receive Date: 20140206
  Receipt Date: 20140206
  Transmission Date: 20141002
  Serious: Yes (Death, Hospitalization, Other)
  Sender: FDA-Public Use
  Company Number: IN-BRISTOL-MYERS SQUIBB COMPANY-14717045

PATIENT
  Age: 32 Year
  Sex: Male
  Weight: 46 kg

DRUGS (2)
  1. DASATINIB [Suspect]
     Indication: CHRONIC MYELOID LEUKAEMIA
     Dates: start: 20080709, end: 20090724
  2. NEXIUM [Concomitant]
     Dosage: TAB

REACTIONS (3)
  - Death [Fatal]
  - Blast crisis in myelogenous leukaemia [Recovered/Resolved]
  - Pleural effusion [Recovered/Resolved]
